FAERS Safety Report 9916674 (Version 1)
Quarter: 2014Q1

REPORT INFORMATION
  Report Type: Report from Study
  Country: US (occurrence: US)
  Receive Date: 20140221
  Receipt Date: 20140221
  Transmission Date: 20141002
  Serious: Yes (Death)
  Sender: FDA-Public Use
  Company Number: US-US-EMD SERONO, INC.-7270068

PATIENT
  Sex: Male

DRUGS (2)
  1. REBIF [Suspect]
     Indication: MULTIPLE SCLEROSIS
     Dates: start: 20060519
  2. AVONEX /05982701/ [Suspect]
     Indication: MULTIPLE SCLEROSIS
     Dates: start: 2005, end: 2006

REACTIONS (2)
  - Cardiac failure [Fatal]
  - Influenza like illness [Unknown]
